FAERS Safety Report 17031242 (Version 7)
Quarter: 2022Q1

REPORT INFORMATION
  Report Type: Spontaneous
  Country: US (occurrence: US)
  Receive Date: 20191114
  Receipt Date: 20220317
  Transmission Date: 20220423
  Serious: No
  Sender: FDA-Public Use
  Company Number: US-PFIZER INC-2019446983

PATIENT
  Age: 67 Year
  Sex: Female
  Weight: 74.84 kg

DRUGS (4)
  1. EUCRISA [Suspect]
     Active Substance: CRISABOROLE
     Indication: Eczema nummular
     Dosage: UNK, 2X/DAY (2% APPLY TO SCALP TWICE DAILY)
     Route: 061
  2. EUCRISA [Suspect]
     Active Substance: CRISABOROLE
     Indication: Skin disorder
     Dosage: UNK, 2X/DAY (APPLY A THIN LAYER TO AFFECTED AREA)
     Route: 061
  3. EUCRISA [Suspect]
     Active Substance: CRISABOROLE
     Indication: Dermatitis atopic
  4. EUCRISA [Suspect]
     Active Substance: CRISABOROLE
     Indication: Eczema

REACTIONS (3)
  - Therapeutic product effect incomplete [Unknown]
  - Headache [Unknown]
  - Intentional product misuse [Unknown]
